FAERS Safety Report 15807911 (Version 1)
Quarter: 2019Q1

REPORT INFORMATION
  Report Type: Spontaneous
  Country: GB (occurrence: GB)
  Receive Date: 20190110
  Receipt Date: 20190110
  Transmission Date: 20190417
  Serious: Yes (Life-Threatening, Hospitalization)
  Sender: FDA-Public Use
  Company Number: GB-TEVA-2019-GB-997083

PATIENT
  Age: 50 Year
  Sex: Female
  Weight: 101.4 kg

DRUGS (6)
  1. CODEINE [Concomitant]
     Active Substance: CODEINE
  2. LANSOPRAZOLE. [Concomitant]
     Active Substance: LANSOPRAZOLE
  3. CLARITHROMYCIN CITRATE [Concomitant]
     Active Substance: CLARITHROMYCIN CITRATE
  4. CO-AMOXICLAV [Suspect]
     Active Substance: AMOXICILLIN\CLAVULANATE POTASSIUM
     Indication: HYSTERECTOMY
     Dosage: 1.2 GRAM DAILY;
     Route: 042
     Dates: start: 20181129, end: 20181129
  5. PARACETAMOL [Concomitant]
     Active Substance: ACETAMINOPHEN
  6. AMOXICILLIN. [Concomitant]
     Active Substance: AMOXICILLIN

REACTIONS (2)
  - Anaphylactic reaction [Recovered/Resolved]
  - Dysgeusia [Recovered/Resolved]

NARRATIVE: CASE EVENT DATE: 20181129
